FAERS Safety Report 24893735 (Version 1)
Quarter: 2025Q1

REPORT INFORMATION
  Report Type: Spontaneous
  Country: US (occurrence: US)
  Receive Date: 20250128
  Receipt Date: 20250128
  Transmission Date: 20250409
  Serious: Yes (Life-Threatening, Hospitalization, Other)
  Sender: AUROBINDO
  Company Number: US-MLMSERVICE-20250107-PI337636-00271-1

PATIENT
  Age: 84 Year
  Sex: Male

DRUGS (1)
  1. PREDNISONE [Suspect]
     Active Substance: PREDNISONE
     Indication: Erythema nodosum
     Dosage: 5 MILLIGRAM, ONCE A DAY
     Route: 065

REACTIONS (6)
  - Meningitis bacterial [Recovering/Resolving]
  - Capnocytophaga infection [Recovering/Resolving]
  - Intentional product misuse [Unknown]
  - Extra dose administered [Unknown]
  - Appendicitis [Recovered/Resolved]
  - Seizure [Unknown]
